FAERS Safety Report 21682559 (Version 1)
Quarter: 2022Q4

REPORT INFORMATION
  Report Type: Spontaneous
  Country: CH (occurrence: CH)
  Receive Date: 20221205
  Receipt Date: 20221205
  Transmission Date: 20230112
  Serious: Yes (Hospitalization, Other)
  Sender: FDA-Public Use
  Company Number: None

PATIENT
  Age: 27 Month
  Sex: Male

DRUGS (20)
  1. SOLU-MEDROL [Suspect]
     Active Substance: METHYLPREDNISOLONE SODIUM SUCCINATE
     Indication: Immunosuppression
     Dosage: 1 DF
     Route: 042
     Dates: start: 20220427, end: 20220428
  2. CELLCEPT [Suspect]
     Active Substance: MYCOPHENOLATE MOFETIL
     Indication: Immunosuppression
     Dosage: CUMULATIVE 3 DOSAGE UNITS ENTERALLY VIA TUBE
     Route: 048
     Dates: start: 20220427, end: 20220428
  3. CYCLOSPORINE [Suspect]
     Active Substance: CYCLOSPORINE
     Indication: Immunosuppression
     Dosage: CUMULATIVE 3 DOSAGE UNITS ENTERALLY VIA THE TUBE
     Route: 048
     Dates: start: 20220427, end: 20220428
  4. HEPARIN [Suspect]
     Active Substance: HEPARIN SODIUM
     Dosage: 1 DF
     Dates: start: 20220428
  5. METOPROLOL [Concomitant]
     Active Substance: METOPROLOL
     Dosage: 2 MG, 1-0-1, 2X/DAY
     Route: 048
     Dates: start: 20220413
  6. AMLODIPINE [Concomitant]
     Active Substance: AMLODIPINE BESYLATE
     Dosage: 2 MG, 1-0-1, 2X/DAY
     Route: 048
     Dates: start: 20220413
  7. VALSARTAN [Concomitant]
     Active Substance: VALSARTAN
     Dosage: 20 MG, 1X/DAY
     Route: 048
     Dates: start: 20220413
  8. CHOLECALCIFEROL [Concomitant]
     Active Substance: CHOLECALCIFEROL
     Dosage: 2500 IU, 1X/DAY
     Route: 048
     Dates: start: 20220413
  9. ALFACALCIDOL [Concomitant]
     Active Substance: ALFACALCIDOL
     Dosage: 1.2 UG, 1X/DAY
     Route: 048
     Dates: start: 20220413
  10. ZITHROMAX [Concomitant]
     Active Substance: AZITHROMYCIN DIHYDRATE
     Dosage: 88 MG, 3X/WEEK
     Route: 048
     Dates: start: 20220413
  11. SULFAMETHOXAZOLE\TRIMETHOPRIM [Concomitant]
     Active Substance: SULFAMETHOXAZOLE\TRIMETHOPRIM
     Dosage: 2 ML, 1X/DAY
     Route: 048
     Dates: start: 20220413
  12. MULTILIND [Concomitant]
     Dosage: 1 ML, 1-1-1-0, EVERY 8 HOURS, 3X/DAY
     Route: 048
     Dates: start: 20220413
  13. NATRIUM BICARBONAT [Concomitant]
     Dosage: 2 ML, 2X/DAY
     Route: 048
     Dates: start: 20220413
  14. CALCIUMGLUCONAT BRAUN [Concomitant]
     Dosage: 10 ML, 3X/DAY
     Route: 048
     Dates: start: 20220413
  15. NEXIUM [Concomitant]
     Active Substance: ESOMEPRAZOLE MAGNESIUM
     Dosage: 8 MG, 1X/DAY
     Route: 048
     Dates: start: 20220413
  16. OXYBUTYNIN [Concomitant]
     Active Substance: OXYBUTYNIN
     Dosage: 1.25 MG, 1X/DAY
     Route: 048
  17. ACETAMINOPHEN [Concomitant]
     Active Substance: ACETAMINOPHEN
     Dosage: 130 MG, AS NEEDED
     Route: 048
     Dates: start: 20220413
  18. ATROVENT [Concomitant]
     Active Substance: IPRATROPIUM BROMIDE
     Dosage: 0.25MG/2ML, 1 DF, AS NEEDED
     Route: 055
     Dates: start: 20220413
  19. PULMICORT TURBUHALER [Concomitant]
     Active Substance: BUDESONIDE
     Dosage: 0.25MG/2ML 1 DF, AS NEEDED
     Route: 055
     Dates: start: 20220413
  20. ARANESP [Concomitant]
     Active Substance: DARBEPOETIN ALFA
     Dosage: UNK, WEEKLY
     Route: 058

REACTIONS (2)
  - Rhabdomyolysis [Recovering/Resolving]
  - Intra-abdominal haemorrhage [Recovering/Resolving]

NARRATIVE: CASE EVENT DATE: 20220428
